FAERS Safety Report 5536914-9 (Version None)
Quarter: 2007Q4

REPORT INFORMATION
  Report Type: 
  Country: None (occurrence: None)
  Receive Date: 20071207
  Receipt Date: 20071204
  Transmission Date: 20080405
  Serious: Yes (Death, Hospitalization)
  Sender: FDA-Public Use
  Company Number: PHNU2007DE03562

PATIENT
  Age: 41 Year
  Sex: Female

DRUGS (11)
  1. GLIANIMON [Concomitant]
     Dosage: 32 MG/DAY
     Route: 048
  2. HALOPERIDOL DECANOATE [Concomitant]
     Dosage: 2 MG/DAY
     Route: 030
     Dates: end: 20071012
  3. LEPONEX [Suspect]
     Indication: SCHIZOPHRENIA, PARANOID TYPE
     Dosage: 800 MG/DAY
     Route: 048
  4. AKINETON [Concomitant]
     Dosage: 8 MG/DAY
     Route: 048
  5. L-THYROXIN [Concomitant]
     Dosage: 50 A?G/DAY
     Route: 048
  6. TAVOR [Concomitant]
     Dosage: 3 MG/DAY
     Route: 048
     Dates: start: 20070919
  7. GASTROZEPIN [Concomitant]
     Dosage: 50 MG/DAY
     Route: 048
     Dates: start: 20070312
  8. SAB SIMPLEX [Concomitant]
     Dosage: 2 MG/DAY
     Dates: start: 20070925
  9. KALINOR [Concomitant]
     Dosage: 2 MG/DAY
     Dates: start: 20070928
  10. AUGMENTAN ORAL [Concomitant]
     Dates: start: 20070926
  11. FRAGMIN [Concomitant]
     Route: 058
     Dates: start: 20070928

REACTIONS (3)
  - CARDIAC FAILURE [None]
  - COLITIS ISCHAEMIC [None]
  - CONSTIPATION [None]
